FAERS Safety Report 9882981 (Version 2)
Quarter: 2014Q1

REPORT INFORMATION
  Report Type: Spontaneous
  Country: FR (occurrence: None)
  Receive Date: 20140204
  Receipt Date: 20140220
  Transmission Date: 20141002
  Serious: Yes (Hospitalization)
  Sender: FDA-Public Use
  Company Number: AXC-2014-000072

PATIENT
  Age: 63 Year
  Sex: Female

DRUGS (5)
  1. PYLERA [Suspect]
     Indication: PRODUCT USED FOR UNKNOWN INDICATION
     Dosage: 3 DF
     Route: 048
     Dates: start: 20131027, end: 20131105
  2. LIPANTHYL (FENOFIBRATE) [Concomitant]
  3. ISOPTIN?/00014302/ (VERAPAMIL HYDROCHLORIDE) [Concomitant]
  4. ZALDIAR (PARACETAMOL, TRAMADOL HYDROCHLORIDE) [Concomitant]
  5. LEXOMIL (BROMAZEPAM) [Concomitant]

REACTIONS (3)
  - Pustular psoriasis [None]
  - Arthralgia [None]
  - Guttate psoriasis [None]
